FAERS Safety Report 19267152 (Version 1)
Quarter: 2021Q2

REPORT INFORMATION
  Report Type: Other
  Country: US (occurrence: US)
  Receive Date: 20210518
  Receipt Date: 20210518
  Transmission Date: 20210717
  Serious: Yes (Other)
  Sender: FDA-Public Use
  Company Number: US-ROCHE-2829912

PATIENT
  Age: 76 Year
  Sex: Female

DRUGS (1)
  1. AVASTIN [Suspect]
     Active Substance: BEVACIZUMAB
     Indication: RETINAL VEIN OCCLUSION
     Route: 050

REACTIONS (4)
  - Retinal tear [Recovered/Resolved]
  - Off label use [Unknown]
  - Subretinal fluid [Recovered/Resolved]
  - Blindness [Recovered/Resolved]
